FAERS Safety Report 18973618 (Version 1)
Quarter: 2021Q1

REPORT INFORMATION
  Report Type: Spontaneous
  Country: US (occurrence: US)
  Receive Date: 20210304
  Receipt Date: 20210304
  Transmission Date: 20210420
  Serious: No
  Sender: FDA-Public Use
  Company Number: None

PATIENT
  Age: 65 Year
  Sex: Male
  Weight: 89.81 kg

DRUGS (5)
  1. DUPIXENT [Suspect]
     Active Substance: DUPILUMAB
     Indication: ASTHMA
     Dosage: ?          QUANTITY:1 DF DOSAGE FORM;?
     Dates: end: 20210212
  2. DILTIAZEM. [Concomitant]
     Active Substance: DILTIAZEM
  3. DUPIXENT [Suspect]
     Active Substance: DUPILUMAB
     Indication: NASAL POLYPS
     Dosage: ?          QUANTITY:1 DF DOSAGE FORM;?
     Dates: end: 20210212
  4. FINASTERIDE. [Concomitant]
     Active Substance: FINASTERIDE
  5. XARALTA [Concomitant]

REACTIONS (3)
  - Therapy cessation [None]
  - Influenza like illness [None]
  - Myalgia [None]

NARRATIVE: CASE EVENT DATE: 20190202
